FAERS Safety Report 16347715 (Version 1)
Quarter: 2019Q2

REPORT INFORMATION
  Report Type: Spontaneous
  Country: US (occurrence: US)
  Receive Date: 20190523
  Receipt Date: 20190523
  Transmission Date: 20190711
  Serious: Yes (Other)
  Sender: FDA-Public Use
  Company Number: US-MALLINCKRODT-T201903888

PATIENT
  Age: 20 Month
  Sex: Female

DRUGS (3)
  1. VIGABATRIN. [Suspect]
     Active Substance: VIGABATRIN
     Indication: INFANTILE SPASMS
     Dosage: 150 MG/KG/DAY
     Route: 065
  2. H.P. ACTHAR [Suspect]
     Active Substance: CORTICOTROPIN
     Indication: INFANTILE SPASMS
     Dosage: UNK
     Route: 065
  3. PREDNISONE. [Concomitant]
     Active Substance: PREDNISONE
     Indication: INFANTILE SPASMS
     Dosage: UNK
     Route: 065

REACTIONS (6)
  - Toxicity to various agents [Recovering/Resolving]
  - Epidural lipomatosis [Unknown]
  - Lethargy [Unknown]
  - Aspiration [Unknown]
  - Paraplegia [Unknown]
  - Poor sucking reflex [Unknown]
